FAERS Safety Report 7450372 (Version 6)
Quarter: 2013Q4

REPORT INFORMATION
  Report Type: Spontaneous
  Country: US (occurrence: US)
  Receive Date: 20100701
  Receipt Date: 20131030
  Transmission Date: 20140711
  Serious: Yes (Other)
  Sender: FDA-Public Use
  Company Number: US-BAYER-201026125NA

PATIENT
  Age: 32 Year
  Sex: Female
  Weight: 63 kg

DRUGS (14)
  1. YASMIN [Suspect]
     Indication: PRODUCT USED FOR UNKNOWN INDICATION
     Dosage: UNK UNK, QD
     Route: 048
     Dates: start: 200901, end: 200912
  2. FIORICET [Concomitant]
  3. ALBUTEROL [Concomitant]
  4. PROTONIX [Concomitant]
     Dosage: 40 MG, UNK
     Route: 042
     Dates: start: 20090611
  5. NORCO [Concomitant]
  6. ALLEGRA [Concomitant]
  7. VICODIN [Concomitant]
     Indication: MIGRAINE
     Dosage: AS NEEDED
     Route: 048
  8. ORAL CONTRACEPTIVE NOS [Concomitant]
  9. ALKA-SELTZER [ACETYLSALICYLIC ACID] [Concomitant]
  10. FEXOFENADINE [Concomitant]
     Dosage: 60 MG, BID
     Route: 048
  11. ANTACIDS, OTHER COMBINATIONS [Concomitant]
     Dosage: UNK
     Route: 048
     Dates: start: 20090611
  12. REGLAN [Concomitant]
     Dosage: 10 MG, UNK
     Route: 042
  13. ZOFRAN [Concomitant]
     Dosage: 4 MG, UNK
     Route: 042
     Dates: start: 20090611
  14. ASTELIN [Concomitant]
     Dosage: 137 MCG, 2 SPRAYS EACH NOSTRIL TWICE DAILY
     Route: 045

REACTIONS (2)
  - Gallbladder disorder [None]
  - Cholecystitis [None]
